FAERS Safety Report 6193903-1 (Version None)
Quarter: 2009Q2

REPORT INFORMATION
  Report Type: 
  Country: None (occurrence: None)
  Receive Date: 20090518
  Receipt Date: 20090506
  Transmission Date: 20091009
  Serious: Yes (Other)
  Sender: FDA-Public Use
  Company Number: US-PFIZER INC-2009209894

PATIENT
  Sex: Male

DRUGS (2)
  1. SOMAVERT [Suspect]
     Indication: PITUITARY TUMOUR
     Dosage: 15 MG, 1X/DAY
  2. SOMAVERT [Suspect]
     Dosage: 30 MG, 1X/DAY
     Dates: start: 20090201

REACTIONS (4)
  - DIZZINESS [None]
  - HEADACHE [None]
  - NAUSEA [None]
  - PITUITARY TUMOUR [None]
